FAERS Safety Report 24770363 (Version 1)
Quarter: 2024Q4

REPORT INFORMATION
  Report Type: Spontaneous
  Country: IT (occurrence: IT)
  Receive Date: 20241224
  Receipt Date: 20241224
  Transmission Date: 20250115
  Serious: Yes (Hospitalization, Other)
  Sender: NOVARTIS
  Company Number: None

PATIENT
  Age: 3 Year
  Sex: Female
  Weight: 17 kg

DRUGS (7)
  1. TRAMETINIB [Suspect]
     Active Substance: TRAMETINIB
     Indication: Astrocytoma, low grade
     Dosage: 0.5 MG, Q24H (0,5 MG)
     Route: 048
     Dates: start: 20240606, end: 20241216
  2. DABRAFENIB [Suspect]
     Active Substance: DABRAFENIB
     Indication: Product used for unknown indication
     Dosage: UNK (40 MG PER 2 VOLTE AL GIORNO)
     Route: 048
     Dates: start: 20240606, end: 20241216
  3. HYDROCORTISONE [Concomitant]
     Active Substance: HYDROCORTISONE
     Indication: Adrenal insufficiency
     Dosage: UNK (3 MG ORE 8 + 2 MG ORE 19)
     Route: 048
     Dates: start: 20230731, end: 20241216
  4. LEVETIRACETAM [Concomitant]
     Active Substance: LEVETIRACETAM
     Indication: Generalised tonic-clonic seizure
     Dosage: UNK (100 MG ORE 8 ED ORE 20)
     Route: 048
     Dates: start: 20230720, end: 20241216
  5. LEVOTHYROXINE [Concomitant]
     Active Substance: LEVOTHYROXINE
     Indication: Central hypothyroidism
     Dosage: UNK (7 GOCCE ALLE 8)
     Route: 048
     Dates: start: 20230901, end: 20241216
  6. FLUDROCORTISONE [Concomitant]
     Active Substance: FLUDROCORTISONE
     Indication: Diabetes insipidus
     Dosage: UNK (0,025 MCG ORE 8)
     Route: 048
     Dates: start: 20230815
  7. AMLODIPINE [Concomitant]
     Active Substance: AMLODIPINE BESYLATE
     Indication: Hypertension
     Dosage: UNK (2,5 MG)
     Route: 048
     Dates: start: 20240201

REACTIONS (1)
  - Pneumonia [Recovering/Resolving]

NARRATIVE: CASE EVENT DATE: 20241216
